FAERS Safety Report 15514039 (Version 1)
Quarter: 2018Q4

REPORT INFORMATION
  Report Type: Spontaneous
  Country: US (occurrence: US)
  Receive Date: 20181016
  Receipt Date: 20181016
  Transmission Date: 20190205
  Serious: No
  Sender: FDA-Public Use
  Company Number: US-AMGEN-USASP2018103680

PATIENT
  Age: 68 Year
  Sex: Female
  Weight: 63.49 kg

DRUGS (5)
  1. NEULASTA [Suspect]
     Active Substance: PEGFILGRASTIM
     Indication: NEUTROPENIA
     Dosage: 6 MG, UNK
     Route: 058
     Dates: start: 20170126
  2. DECADRON [Concomitant]
     Active Substance: DEXAMETHASONE
     Indication: BREAST CANCER
     Dosage: 10 MG, UNK (IN 5% DEXTROSE IN WATER 50 ML, GIVEN OVER 10 MINUTES AS IVPB)
     Route: 042
  3. SODIUM CHLORIDE. [Concomitant]
     Active Substance: SODIUM CHLORIDE
     Dosage: 500 ML, UNK (0.9% SODIUM CHLORIDE 500 ML)
  4. NAVELBINE [Concomitant]
     Active Substance: VINORELBINE TARTRATE
     Indication: BREAST CANCER
     Dosage: 45 MG, UNK (GIVEN OVER 6 MINUTES AS PUSH)
     Route: 042
  5. ALOXI [Concomitant]
     Active Substance: PALONOSETRON HYDROCHLORIDE
     Indication: BREAST CANCER
     Dosage: 0.25 MG, UNK (IN 0.9% SODIUM CHLORIDE 10 ML, GIVEN OVER 30 SECONDS AS PUSH)
     Route: 042

REACTIONS (3)
  - Fatigue [Unknown]
  - Application site discomfort [Unknown]
  - Unintentional medical device removal [Unknown]

NARRATIVE: CASE EVENT DATE: 20180726
